FAERS Safety Report 6970646-5 (Version None)
Quarter: 2010Q3

REPORT INFORMATION
  Report Type: 
  Country: None (occurrence: None)
  Receive Date: 20100908
  Receipt Date: 20100827
  Transmission Date: 20110219
  Serious: Yes (Other)
  Sender: FDA-Public Use
  Company Number: US-PFIZER INC-2010081498

PATIENT
  Sex: Female
  Weight: 36.3 kg

DRUGS (5)
  1. LYRICA [Suspect]
     Indication: FIBROMYALGIA
     Dosage: 100 MG, 3X/DAY
     Dates: start: 20090501, end: 20100630
  2. EFFEXOR [Suspect]
     Dosage: 37.5 MG, 3X/DAY
     Dates: start: 20100501
  3. EFFEXOR [Suspect]
     Dosage: 150 MG/DAY
     Dates: start: 20100101, end: 20100101
  4. CYMBALTA [Concomitant]
     Dosage: 30 MG, UNK
  5. PAXIL [Concomitant]
     Dosage: 40 MG, UNK

REACTIONS (2)
  - TINNITUS [None]
  - WEIGHT INCREASED [None]
